FAERS Safety Report 12139142 (Version 2)
Quarter: 2016Q1

REPORT INFORMATION
  Report Type: Report from Study
  Country: MX (occurrence: MX)
  Receive Date: 20160302
  Receipt Date: 20160308
  Transmission Date: 20160526
  Serious: Yes (Other)
  Sender: FDA-Public Use
  Company Number: MX-AMGEN-MEXSL2016024614

PATIENT
  Age: 77 Year
  Sex: Female

DRUGS (1)
  1. PROLIA [Suspect]
     Active Substance: DENOSUMAB
     Indication: ARTHRITIS
     Dosage: UNK UNK, Q6MO
     Route: 058
     Dates: start: 20150701

REACTIONS (2)
  - Off label use [Unknown]
  - Ear operation [Unknown]
